FAERS Safety Report 7808729-X (Version None)
Quarter: 2011Q4

REPORT INFORMATION
  Report Type: 
  Country: None (occurrence: None)
  Receive Date: 20111012
  Receipt Date: 20110930
  Transmission Date: 20120403
  Serious: Yes (Other)
  Sender: FDA-Public Use
  Company Number: JP-AMGEN-JPNCT2011051842

PATIENT
  Age: 50 Year
  Sex: Male
  Weight: 70 kg

DRUGS (38)
  1. PANITUMUMAB [Suspect]
     Dosage: 6 MG/KG, Q2WK
     Route: 041
     Dates: start: 20110128
  2. CORTICOSTEROIDS [Concomitant]
     Indication: PROPHYLAXIS
     Dosage: UNK
     Route: 065
  3. NEUROTROPIN [Concomitant]
     Dosage: UNK
     Route: 048
  4. PROTECADIN [Concomitant]
     Indication: GASTRIC ULCER
     Dosage: UNK
     Route: 048
  5. ALOXI [Concomitant]
     Indication: VOMITING
     Dosage: UNK
     Route: 042
  6. DEXAMETHASONE SODIUM PHOSPHATE [Concomitant]
     Indication: VOMITING
     Dosage: UNK
     Route: 042
  7. PANITUMUMAB [Suspect]
     Indication: COLORECTAL CANCER
     Dosage: 6 MG/KG, Q2WK
     Route: 041
     Dates: start: 20100917, end: 20101126
  8. MOBIC [Concomitant]
     Dosage: UNK
     Route: 048
  9. KETOPROFEN [Concomitant]
     Dosage: UNK
     Route: 062
  10. POTASSIUM CHLORIDE [Concomitant]
     Indication: VOMITING
     Dosage: UNK
     Route: 042
  11. ANTEBATE [Concomitant]
     Dosage: UNK
     Route: 062
  12. POSTERISAN [Concomitant]
     Dosage: UNK
     Route: 062
  13. PRIMPERAN TAB [Concomitant]
     Indication: VOMITING
     Dosage: UNK
     Route: 042
  14. LOCOID [Concomitant]
     Route: 062
  15. SOLACET F [Concomitant]
     Indication: VOMITING
     Dosage: UNK
     Route: 042
  16. MOTILIUM [Concomitant]
     Indication: VOMITING
     Dosage: UNK
     Route: 054
  17. RIBOFLAVIN TAB [Concomitant]
     Route: 048
  18. PANITUMUMAB [Suspect]
     Dosage: 5 MG/KG, Q2WK
     Route: 041
     Dates: start: 20101210, end: 20110114
  19. MECOBALAMIN [Concomitant]
     Dosage: UNK
     Route: 048
  20. LIDOMEX [Concomitant]
     Dosage: UNK
     Route: 062
  21. FAMOTIDINE [Concomitant]
     Dosage: UNK
     Route: 042
  22. KERATINAMIN [Concomitant]
     Dosage: UNK
     Route: 062
  23. GENTAMICIN SULFATE [Concomitant]
     Dosage: UNK
     Route: 062
  24. LEVOFLOXACIN [Concomitant]
     Dosage: UNK
     Route: 047
  25. FLUMETHOLON [Concomitant]
     Dosage: UNK
     Route: 047
  26. LEVOLEUCOVORIN CALCIUM [Concomitant]
     Indication: COLORECTAL CANCER
     Route: 041
     Dates: start: 20100917, end: 20110128
  27. PYDOXAL [Concomitant]
     Dosage: UNK
     Route: 048
  28. HIRUDOID [Concomitant]
     Dosage: UNK
     Route: 065
  29. TRANEXAMIC ACID [Concomitant]
     Dosage: UNK
     Route: 048
  30. PROMAC [Concomitant]
     Indication: GASTRIC ULCER
     Dosage: UNK
     Route: 048
  31. EMEND [Concomitant]
     Indication: VOMITING
     Dosage: UNK
     Route: 048
  32. FLUOROURACIL [Suspect]
     Dosage: 2400 MG/M2, Q2WK
     Route: 041
     Dates: start: 20100917
  33. DASEN [Concomitant]
     Dosage: UNK
     Route: 048
  34. LEUCON [Concomitant]
     Dosage: UNK
     Route: 048
  35. FLUOROURACIL [Suspect]
     Indication: COLORECTAL CANCER
     Dosage: 400 MG/M2, Q2WK
     Route: 040
     Dates: start: 20100917
  36. TOPOTECAN [Suspect]
     Indication: COLORECTAL CANCER
     Dosage: 150 MG/M2, Q2WK
     Route: 041
     Dates: start: 20100917
  37. DECADRON [Concomitant]
     Indication: VOMITING
     Dosage: UNK
     Route: 048
  38. NIFLAN OPHTHALMIC SOLUTION [Concomitant]
     Dosage: UNK
     Route: 047

REACTIONS (4)
  - INGROWING NAIL [None]
  - CONJUNCTIVITIS [None]
  - HYPERKERATOSIS [None]
  - HAEMORRHOIDS [None]
